FAERS Safety Report 7130368-7 (Version None)
Quarter: 2010Q4

REPORT INFORMATION
  Report Type: 
  Country: None (occurrence: None)
  Receive Date: 20101116
  Receipt Date: 20101102
  Transmission Date: 20110411
  Serious: Yes (Congenital Anomaly)
  Sender: FDA-Public Use
  Company Number: 2010145521

PATIENT

DRUGS (1)
  1. DALTEPARIN SODIUM [Suspect]
     Dosage: 15000 IU, 1X/DAY, TRANSPLACENTAL
     Route: 064
     Dates: start: 20061218, end: 20070326

REACTIONS (3)
  - ABORTION [None]
  - FOETAL MALFORMATION [None]
  - MATERNAL DRUGS AFFECTING FOETUS [None]
